FAERS Safety Report 13135026 (Version 1)
Quarter: 2017Q1

REPORT INFORMATION
  Report Type: Spontaneous
  Country: US (occurrence: US)
  Receive Date: 20170120
  Receipt Date: 20170120
  Transmission Date: 20170428
  Serious: Yes (Other)
  Sender: FDA-Public Use
  Company Number: US-PFIZER INC-2017024091

PATIENT
  Age: 63 Year
  Sex: Male

DRUGS (1)
  1. DOCETAXEL. [Suspect]
     Active Substance: DOCETAXEL
     Indication: MALIGNANT MELANOMA
     Dosage: 100 MG/M2, CYCLIC (FOR 1 HOUR EVERY 21 DAYS)
     Route: 042

REACTIONS (1)
  - Scleroderma-like reaction [Unknown]
